FAERS Safety Report 12131493 (Version 4)
Quarter: 2016Q1

REPORT INFORMATION
  Report Type: Spontaneous
  Country: US (occurrence: US)
  Receive Date: 20160301
  Receipt Date: 20160321
  Transmission Date: 20160526
  Serious: Yes (Hospitalization)
  Sender: FDA-Public Use
  Company Number: US-PFIZER INC-2016115805

PATIENT
  Sex: Female

DRUGS (1)
  1. LYRICA [Suspect]
     Active Substance: PREGABALIN
     Dosage: UNK

REACTIONS (11)
  - Neuralgia [Unknown]
  - Pain in extremity [Unknown]
  - Malaise [Unknown]
  - Pain [Not Recovered/Not Resolved]
  - Movement disorder [Unknown]
  - Headache [Unknown]
  - Pneumonia [Unknown]
  - Bedridden [Unknown]
  - Condition aggravated [Not Recovered/Not Resolved]
  - Back pain [Unknown]
  - Fibromyalgia [Unknown]
